FAERS Safety Report 11045832 (Version 4)
Quarter: 2016Q3

REPORT INFORMATION
  Report Type: Spontaneous
  Country: US (occurrence: US)
  Receive Date: 20150417
  Receipt Date: 20160805
  Transmission Date: 20161109
  Serious: Yes (Life-Threatening, Other)
  Sender: FDA-Public Use
  Company Number: US-ASTRAZENECA-2015SE35105

PATIENT
  Age: 77 Year
  Sex: Female
  Weight: 90.3 kg

DRUGS (12)
  1. ZYRTEC [Concomitant]
     Active Substance: CETIRIZINE HYDROCHLORIDE
     Indication: MULTIPLE ALLERGIES
     Route: 048
     Dates: start: 2011
  2. UNSPECIFIED OMEPRAZOLE CLASS DRUG [Suspect]
     Active Substance: OMEPRAZOLE
     Indication: GASTROOESOPHAGEAL REFLUX DISEASE
     Route: 065
  3. ARIMIDEX [Suspect]
     Active Substance: ANASTROZOLE
     Indication: BREAST CANCER FEMALE
     Route: 048
     Dates: start: 2015
  4. ARIMIDEX [Suspect]
     Active Substance: ANASTROZOLE
     Indication: BREAST CANCER FEMALE
     Route: 048
     Dates: start: 201502, end: 20150408
  5. UNSPECIFIED ALLERGY MED [Concomitant]
     Indication: HYPERSENSITIVITY
  6. ARIMIDEX [Suspect]
     Active Substance: ANASTROZOLE
     Indication: BREAST CANCER FEMALE
     Route: 048
     Dates: start: 201501
  7. CRESTOR [Suspect]
     Active Substance: ROSUVASTATIN CALCIUM
     Indication: BLOOD CHOLESTEROL ABNORMAL
     Route: 048
     Dates: start: 2013
  8. BYSTOLIC [Concomitant]
     Active Substance: NEBIVOLOL HYDROCHLORIDE
     Indication: BLOOD PRESSURE ABNORMAL
     Route: 048
     Dates: start: 2011
  9. PROBIOTIC [Concomitant]
     Active Substance: PROBIOTICS NOS
     Indication: ILL-DEFINED DISORDER
     Route: 048
     Dates: start: 2015
  10. LOPID [Concomitant]
     Active Substance: GEMFIBROZIL
     Indication: BLOOD TRIGLYCERIDES ABNORMAL
     Route: 048
     Dates: start: 2011
  11. LISINOPRIL. [Suspect]
     Active Substance: LISINOPRIL
     Indication: HYPERTENSION
     Route: 048
     Dates: start: 2010
  12. ASPIRIN. [Concomitant]
     Active Substance: ASPIRIN
     Indication: CARDIAC DISORDER
     Route: 048

REACTIONS (19)
  - Functional gastrointestinal disorder [Unknown]
  - Insomnia [Unknown]
  - Hot flush [Unknown]
  - Drug dose omission [Not Recovered/Not Resolved]
  - Nervousness [Unknown]
  - Arthralgia [Unknown]
  - Peripheral swelling [Unknown]
  - Joint swelling [Unknown]
  - Depressed mood [Unknown]
  - Weight decreased [Not Recovered/Not Resolved]
  - Fatigue [Unknown]
  - Alopecia [Unknown]
  - Paraesthesia [Unknown]
  - Breast cancer female [Not Recovered/Not Resolved]
  - Nausea [Unknown]
  - Neck pain [Unknown]
  - Asthenia [Unknown]
  - Sinus disorder [Unknown]
  - Mood swings [Unknown]

NARRATIVE: CASE EVENT DATE: 2014
